FAERS Safety Report 22052872 (Version 2)
Quarter: 2023Q1

REPORT INFORMATION
  Report Type: Spontaneous
  Country: JP (occurrence: JP)
  Receive Date: 20230302
  Receipt Date: 20230309
  Transmission Date: 20230418
  Serious: Yes (Other)
  Sender: FDA-Public Use
  Company Number: JP-Accord-302177

PATIENT
  Age: 62 Year
  Sex: Female

DRUGS (3)
  1. GEMCITABINE [Suspect]
     Active Substance: GEMCITABINE
     Indication: Metastases to lung
     Dosage: 9 COURSES OF GEM MONOTHERAPY (3 WEEKS ON, 1 WEEK OFF)
  2. GEMCITABINE [Suspect]
     Active Substance: GEMCITABINE
     Indication: Pancreatic carcinoma
     Dosage: 9 COURSES OF GEM MONOTHERAPY (3 WEEKS ON, 1 WEEK OFF)
  3. GEMCITABINE [Suspect]
     Active Substance: GEMCITABINE
     Indication: Metastases to lung
     Dosage: 9 COURSES OF GEM MONOTHERAPY (3 WEEKS ON, 1 WEEK OFF)

REACTIONS (2)
  - Neutropenia [Unknown]
  - Leukopenia [Unknown]
